FAERS Safety Report 8997434 (Version 1)
Quarter: 2013Q1

REPORT INFORMATION
  Report Type: Spontaneous
  Country: US (occurrence: US)
  Receive Date: 20130104
  Receipt Date: 20130104
  Transmission Date: 20140127
  Serious: Yes (Other)
  Sender: FDA-Public Use
  Company Number: US-PFIZER INC-2013002458

PATIENT
  Sex: 0

DRUGS (1)
  1. VIAGRA [Suspect]
     Dosage: 100 MG, UNK

REACTIONS (2)
  - Prostate cancer [Unknown]
  - Drug effect decreased [Unknown]
